FAERS Safety Report 17608562 (Version 2)
Quarter: 2020Q2

REPORT INFORMATION
  Report Type: Spontaneous
  Country: FR (occurrence: FR)
  Receive Date: 20200401
  Receipt Date: 20200406
  Transmission Date: 20200713
  Serious: Yes (Other)
  Sender: FDA-Public Use
  Company Number: FR-LEO PHARMA-329001

PATIENT
  Sex: Female

DRUGS (3)
  1. PROTOPIC [Suspect]
     Active Substance: TACROLIMUS
     Indication: VITILIGO
     Dosage: UNKNOWN
     Route: 065
  2. TAKROZEM [Suspect]
     Active Substance: TACROLIMUS
     Indication: VITILIGO
  3. TAKROZEM [Suspect]
     Active Substance: TACROLIMUS
     Indication: OFF LABEL USE
     Dosage: UNKNOWN
     Dates: start: 201711

REACTIONS (2)
  - Product use in unapproved indication [Unknown]
  - T-cell lymphoma [Unknown]

NARRATIVE: CASE EVENT DATE: 20200215
